FAERS Safety Report 11065551 (Version 2)
Quarter: 2015Q2

REPORT INFORMATION
  Report Type: Spontaneous
  Country: US (occurrence: US)
  Receive Date: 20150425
  Receipt Date: 20150525
  Transmission Date: 20150821
  Serious: No
  Sender: FDA-Public Use
  Company Number: US-JNJFOC-20140514449

PATIENT
  Sex: Female
  Weight: 79.38 kg

DRUGS (2)
  1. MINOCYCLINE [Suspect]
     Active Substance: MINOCYCLINE\MINOCYCLINE HYDROCHLORIDE
     Indication: ERYTHEMA
     Route: 048
     Dates: start: 201405, end: 201405
  2. STELARA [Suspect]
     Active Substance: USTEKINUMAB
     Indication: PITYRIASIS RUBRA PILARIS
     Route: 058
     Dates: start: 20140429

REACTIONS (4)
  - Exfoliative rash [Not Recovered/Not Resolved]
  - Skin burning sensation [Not Recovered/Not Resolved]
  - Drug ineffective for unapproved indication [Unknown]
  - Adverse event [Unknown]

NARRATIVE: CASE EVENT DATE: 2014
